FAERS Safety Report 11422343 (Version 1)
Quarter: 2015Q3

REPORT INFORMATION
  Report Type: Spontaneous
  Country: KR (occurrence: None)
  Receive Date: 20150825
  Receipt Date: 20150825
  Transmission Date: 20151125
  Serious: Yes (Hospitalization)
  Sender: FDA-Public Use
  Company Number: IPC201508-000545

PATIENT
  Age: 76 Year
  Sex: Male

DRUGS (1)
  1. ALLOPURINOL (ALLOPURINOL) (ALLOPURINOL) [Suspect]
     Active Substance: ALLOPURINOL
     Indication: HYPERURICAEMIA

REACTIONS (6)
  - Drug reaction with eosinophilia and systemic symptoms [None]
  - Erythema multiforme [None]
  - Haemodialysis [None]
  - Acute kidney injury [None]
  - Subdural haemorrhage [None]
  - Toxic epidermal necrolysis [None]
